FAERS Safety Report 4844848-8 (Version None)
Quarter: 2005Q4

REPORT INFORMATION
  Report Type: 
  Country: None (occurrence: None)
  Receive Date: 20051205
  Receipt Date: 20051202
  Transmission Date: 20060501
  Serious: Yes (Hospitalization)
  Sender: FDA-Public Use
  Company Number: US-GLAXOSMITHKLINE-A0584411A

PATIENT
  Age: 48 Year
  Sex: Female

DRUGS (6)
  1. COMMIT [Suspect]
     Dates: start: 20051104, end: 20051119
  2. FUROSEMIDE [Concomitant]
     Indication: DIURETIC THERAPY
     Route: 048
  3. URSO [Concomitant]
     Indication: PRURITUS
     Route: 048
  4. SPIRONOLACTONE [Concomitant]
     Indication: DIURETIC THERAPY
     Route: 048
  5. LEVOTHYROXINE SODIUM [Concomitant]
     Indication: HYPOTHYROIDISM
     Route: 048
  6. ENULOSE [Concomitant]
     Route: 048

REACTIONS (9)
  - CHEST DISCOMFORT [None]
  - DIZZINESS [None]
  - ELECTROCARDIOGRAM ABNORMAL [None]
  - FEELING HOT [None]
  - HEART RATE IRREGULAR [None]
  - HICCUPS [None]
  - SLEEP DISORDER [None]
  - SYNCOPE [None]
  - VOMITING [None]
